FAERS Safety Report 9572003 (Version 1)
Quarter: 2013Q3

REPORT INFORMATION
  Report Type: Spontaneous
  Country: GB (occurrence: None)
  Receive Date: 20130927
  Receipt Date: 20130927
  Transmission Date: 20140515
  Serious: Yes (Disabling, Other)
  Sender: FDA-Public Use
  Company Number: GER/UKI/13/0034640

PATIENT
  Age: 58 Year
  Sex: Male
  Weight: 105.2 kg

DRUGS (1)
  1. ATORVASTATIN [Suspect]
     Indication: BLOOD CHOLESTEROL INCREASED
     Dosage: 1 DOSAGE FORMS, 2 IN 1 D, ORAL
     Route: 048
     Dates: start: 20101109, end: 20130204

REACTIONS (5)
  - Gait disturbance [None]
  - Fatigue [None]
  - Mental impairment [None]
  - Muscular weakness [None]
  - Balance disorder [None]
